FAERS Safety Report 16167966 (Version 1)
Quarter: 2019Q2

REPORT INFORMATION
  Report Type: Spontaneous
  Country: US (occurrence: US)
  Receive Date: 20190304
  Receipt Date: 20190304
  Transmission Date: 20190711
  Serious: No
  Sender: FDA-Public Use
  Company Number: None

PATIENT
  Age: 71 Year
  Sex: Female

DRUGS (10)
  1. ATORVASTATIN [Concomitant]
     Active Substance: ATORVASTATIN
  2. DEXAMETHASONE. [Concomitant]
     Active Substance: DEXAMETHASONE
  3. GABAPENTIN. [Concomitant]
     Active Substance: GABAPENTIN
  4. METFORMIN [Concomitant]
     Active Substance: METFORMIN HYDROCHLORIDE
  5. LOSARTAN. [Concomitant]
     Active Substance: LOSARTAN
  6. ASA [Concomitant]
     Active Substance: ASPIRIN
  7. REVLIMID [Suspect]
     Active Substance: LENALIDOMIDE
     Indication: PLASMA CELL MYELOMA
     Dosage: ?          OTHER FREQUENCY:QD X14/21D;?
     Route: 048
     Dates: start: 20190121, end: 20190203
  8. LORAZEPAM. [Concomitant]
     Active Substance: LORAZEPAM
  9. MVI [Concomitant]
     Active Substance: VITAMINS
  10. THIAMIC [Concomitant]

REACTIONS (2)
  - Drug eruption [None]
  - Rash maculo-papular [None]

NARRATIVE: CASE EVENT DATE: 20190304
